FAERS Safety Report 7415134-7 (Version None)
Quarter: 2011Q2

REPORT INFORMATION
  Report Type: 
  Country: None (occurrence: None)
  Receive Date: 20110414
  Receipt Date: 20110406
  Transmission Date: 20111010
  Serious: Yes (Other)
  Sender: FDA-Public Use
  Company Number: JP-ROCHE-770707

PATIENT
  Age: 22 Year
  Sex: Male
  Weight: 40 kg

DRUGS (1)
  1. PEGASYS [Suspect]
     Indication: HEPATITIS C
     Dosage: DOSAGE IS UNCERTAIN.
     Route: 058
     Dates: start: 20070201

REACTIONS (14)
  - MUCOSAL EROSION [None]
  - EPISTAXIS [None]
  - PLATELET COUNT DECREASED [None]
  - PULMONARY ALVEOLAR HAEMORRHAGE [None]
  - GRAFT VERSUS HOST DISEASE [None]
  - PYREXIA [None]
  - COUGH [None]
  - LUNG DISORDER [None]
  - ORAL MUCOSAL ERYTHEMA [None]
  - MUCOSAL HAEMORRHAGE [None]
  - WEIGHT DECREASED [None]
  - HAEMATEMESIS [None]
  - DYSPNOEA [None]
  - GASTRITIS [None]
